FAERS Safety Report 19022241 (Version 2)
Quarter: 2021Q2

REPORT INFORMATION
  Report Type: Report from Study
  Country: JP (occurrence: JP)
  Receive Date: 20210317
  Receipt Date: 20210428
  Transmission Date: 20210717
  Serious: Yes (Hospitalization, Other)
  Sender: FDA-Public Use
  Company Number: JP-TEVA-2021-JP-1892568

PATIENT
  Age: 75 Year
  Sex: Female

DRUGS (4)
  1. BENDAMUSTINE HYDROCHLORIDE. [Suspect]
     Active Substance: BENDAMUSTINE HYDROCHLORIDE
     Indication: LYMPHOPLASMACYTOID LYMPHOMA/IMMUNOCYTOMA
  2. RITUXIMAB. [Suspect]
     Active Substance: RITUXIMAB
     Indication: WALDENSTROM^S MACROGLOBULINAEMIA
     Route: 065
  3. RITUXIMAB. [Suspect]
     Active Substance: RITUXIMAB
     Indication: LYMPHOPLASMACYTOID LYMPHOMA/IMMUNOCYTOMA
  4. BENDAMUSTINE HYDROCHLORIDE. [Suspect]
     Active Substance: BENDAMUSTINE HYDROCHLORIDE
     Indication: WALDENSTROM^S MACROGLOBULINAEMIA
     Route: 042

REACTIONS (3)
  - COVID-19 [Recovered/Resolved]
  - Cell-mediated immune deficiency [Unknown]
  - Secondary immunodeficiency [Unknown]
